FAERS Safety Report 17987146 (Version 1)
Quarter: 2020Q3

REPORT INFORMATION
  Report Type: Spontaneous
  Country: US (occurrence: US)
  Receive Date: 20200707
  Receipt Date: 20200707
  Transmission Date: 20201103
  Serious: No
  Sender: FDA-Public Use
  Company Number: US-AMGEN-USASP2020107666

PATIENT
  Age: 55 Year
  Sex: Female

DRUGS (6)
  1. ZOFRAN [Concomitant]
     Active Substance: ONDANSETRON HYDROCHLORIDE
     Dosage: UNK
  2. PROTONIX [OMEPRAZOLE] [Concomitant]
     Active Substance: OMEPRAZOLE
     Dosage: UNK
  3. OTEZLA [Suspect]
     Active Substance: APREMILAST
     Dosage: 30 MILLIGRAM, BID
     Route: 048
     Dates: start: 2020
  4. MOTRIN [Concomitant]
     Active Substance: IBUPROFEN
     Dosage: UNK
  5. OTEZLA [Suspect]
     Active Substance: APREMILAST
     Indication: PSORIASIS
     Dosage: 30 MILLIGRAM, BID
     Route: 048
     Dates: start: 20200414, end: 202004
  6. COREG [Concomitant]
     Active Substance: CARVEDILOL
     Dosage: UNK

REACTIONS (1)
  - Nausea [Recovered/Resolved]

NARRATIVE: CASE EVENT DATE: 202004
